FAERS Safety Report 4372275-9 (Version None)
Quarter: 2004Q2

REPORT INFORMATION
  Report Type: 
  Country: None (occurrence: None)
  Receive Date: 20040602
  Receipt Date: 20040517
  Transmission Date: 20050107
  Serious: Yes (Life-Threatening)
  Sender: FDA-Public Use
  Company Number: 2004214418JP

PATIENT
  Age: 7 Year
  Sex: Female
  Weight: 19 kg

DRUGS (5)
  1. DOXORUBICIN HYDROCHLORIDE [Suspect]
     Indication: BONE SARCOMA
     Dosage: SEE IMAGE
     Route: 042
     Dates: start: 20040309, end: 20040311
  2. DOXORUBICIN HYDROCHLORIDE [Suspect]
     Indication: BONE SARCOMA
     Dosage: SEE IMAGE
     Route: 042
     Dates: start: 20040329, end: 20040331
  3. CISPLATIN [Suspect]
     Indication: BONE SARCOMA
     Dosage: 97 MG, CYCLIC, IV
     Route: 042
     Dates: start: 20040309, end: 20040329
  4. ANNACA (CAFFEINE AND SODIUM BENZOATE) [Suspect]
     Dosage: SEE IMAGE
     Route: 042
     Dates: start: 20040309, end: 20040312
  5. ANNACA (CAFFEINE AND SODIUM BENZOATE) [Suspect]
     Dosage: SEE IMAGE
     Route: 042
     Dates: start: 20040329, end: 20040331

REACTIONS (6)
  - BLOOD CAFFEINE INCREASED [None]
  - BLOOD SODIUM DECREASED [None]
  - EPILEPSY [None]
  - OXYGEN SATURATION DECREASED [None]
  - PUPILS UNEQUAL [None]
  - RESPIRATION ABNORMAL [None]
